FAERS Safety Report 7024094-2 (Version None)
Quarter: 2010Q4

REPORT INFORMATION
  Report Type: 
  Country: None (occurrence: None)
  Receive Date: 20101001
  Receipt Date: 20100920
  Transmission Date: 20110411
  Serious: Yes (Other)
  Sender: FDA-Public Use
  Company Number: CA-JNJFOC-20100701839

PATIENT
  Sex: Female
  Weight: 74.2 kg

DRUGS (5)
  1. REMICADE [Suspect]
     Indication: CROHN'S DISEASE
     Dosage: INFUSION #1-17
     Route: 042
  2. REMICADE [Suspect]
     Dosage: INFUSION #18
     Route: 042
  3. AMOXICILLIN [Suspect]
     Indication: PHARYNGITIS STREPTOCOCCAL
  4. VENTOLIN [Concomitant]
     Indication: ASTHMA
  5. ATIVAN [Concomitant]
     Indication: ANXIETY

REACTIONS (4)
  - ASTHMA [None]
  - DRUG EXPOSURE DURING PREGNANCY [None]
  - PHARYNGITIS STREPTOCOCCAL [None]
  - URTICARIA [None]
